FAERS Safety Report 18489098 (Version 1)
Quarter: 2020Q4

REPORT INFORMATION
  Report Type: Spontaneous
  Country: JP (occurrence: JP)
  Receive Date: 20201111
  Receipt Date: 20201111
  Transmission Date: 20210114
  Serious: Yes (Other)
  Sender: FDA-Public Use
  Company Number: JP-SA-2020SA314404

PATIENT

DRUGS (1)
  1. MYSLEE [Suspect]
     Active Substance: ZOLPIDEM TARTRATE
     Indication: PRODUCT USED FOR UNKNOWN INDICATION
     Dosage: 1 DF
     Route: 048
     Dates: start: 20201102

REACTIONS (9)
  - Palpitations [Unknown]
  - Dizziness [Unknown]
  - Disorientation [Unknown]
  - Pyrexia [Unknown]
  - Seizure [Recovered/Resolved]
  - Tachycardia [Unknown]
  - Intentional overdose [Unknown]
  - Altered state of consciousness [Unknown]
  - Loss of consciousness [Unknown]

NARRATIVE: CASE EVENT DATE: 20201102
